FAERS Safety Report 4451979-3 (Version None)
Quarter: 2004Q3

REPORT INFORMATION
  Report Type: 
  Country: None (occurrence: None)
  Receive Date: 20040915
  Receipt Date: 20040915
  Transmission Date: 20050211
  Serious: Yes (Hospitalization)
  Sender: FDA-Public Use
  Company Number: None

PATIENT
  Age: 61 Year
  Sex: Male
  Weight: 95.2554 kg

DRUGS (11)
  1. METOCLOPRAMIDE [Suspect]
     Indication: NAUSEA
     Dosage: 10 MG IV
     Route: 042
     Dates: start: 20040511
  2. CARDIZEM [Concomitant]
  3. AMIODARONE [Concomitant]
  4. WARFARIN SODIUM [Concomitant]
  5. ZOCOR [Concomitant]
  6. GLUCOSAMINE [Concomitant]
  7. TORADOL [Concomitant]
  8. VERSED [Concomitant]
  9. VIOXX [Concomitant]
  10. ANCEF [Concomitant]
  11. MORPHINE [Concomitant]

REACTIONS (7)
  - BLOOD PRESSURE SYSTOLIC DECREASED [None]
  - EYE ROLLING [None]
  - HEART RATE DECREASED [None]
  - HYPERHIDROSIS [None]
  - LOSS OF CONSCIOUSNESS [None]
  - NAUSEA [None]
  - SYNCOPE VASOVAGAL [None]
